FAERS Safety Report 6774071-1 (Version None)
Quarter: 2010Q2

REPORT INFORMATION
  Report Type: 
  Country: None (occurrence: None)
  Receive Date: 20100616
  Receipt Date: 20100616
  Transmission Date: 20101027
  Serious: No
  Sender: FDA-Public Use
  Company Number: None

PATIENT
  Age: 23 Year
  Sex: Female
  Weight: 60.45 kg

DRUGS (43)
  1. VANCOMYCIN [Suspect]
  2. ZOSYN [Suspect]
  3. MESALAMINE [Suspect]
  4. ALIGN [Concomitant]
  5. AMBIEN [Concomitant]
  6. AQUASOL [Concomitant]
  7. ATIVAN [Concomitant]
  8. AYR [Concomitant]
  9. CATHFLO ACTIVASE [Concomitant]
  10. CEPACOL THROAT LOZ [Concomitant]
  11. CETACAINE AERO [Concomitant]
  12. DELTASONE [Concomitant]
  13. DEMEROL [Concomitant]
  14. DESFLURANE [Concomitant]
  15. DIFLUCAN [Concomitant]
  16. FENTANYL [Concomitant]
  17. FERRLECIT [Concomitant]
  18. FLAGYL [Concomitant]
  19. FRAGMIN [Concomitant]
  20. GLYCOLAX [Concomitant]
  21. HEPARIN SODIUM [Concomitant]
  22. LEVAQUIN [Concomitant]
  23. LEVSIN SL [Concomitant]
  24. LEXAPRO [Concomitant]
  25. LORTAB [Concomitant]
  26. MEFOXIN + NACL [Concomitant]
  27. MEPERIDINE HCL [Concomitant]
  28. MIDAZOLAM HCL [Concomitant]
  29. MORPHINE [Concomitant]
  30. MYLICON [Concomitant]
  31. NARCAN [Concomitant]
  32. NIZORAL CREAM [Concomitant]
  33. NOVOLIN R [Concomitant]
  34. PHENERGAN [Concomitant]
  35. PROCRIT [Concomitant]
  36. PROPOFOL [Concomitant]
  37. PROTONIX [Concomitant]
  38. REGLAN [Concomitant]
  39. ROCURONIUM [Concomitant]
  40. SOLU-MEDROL [Concomitant]
  41. TYLENOL [Concomitant]
  42. VERSED [Concomitant]
  43. WELCHOL [Concomitant]

REACTIONS (2)
  - RENAL FAILURE ACUTE [None]
  - TUBULOINTERSTITIAL NEPHRITIS [None]
